FAERS Safety Report 6889337-4 (Version None)
Quarter: 2010Q3

REPORT INFORMATION
  Report Type: 
  Country: None (occurrence: None)
  Receive Date: 20100730
  Receipt Date: 20080212
  Transmission Date: 20110219
  Serious: Yes (Other)
  Sender: FDA-Public Use
  Company Number: US-PFIZER INC-2007091213

PATIENT
  Sex: Male
  Weight: 122.5 kg

DRUGS (2)
  1. LIPITOR [Suspect]
     Indication: BLOOD CHOLESTEROL
  2. EFFEXOR [Concomitant]

REACTIONS (4)
  - BLOOD PRESSURE INCREASED [None]
  - HIGH DENSITY LIPOPROTEIN DECREASED [None]
  - PRODUCT COUNTERFEIT [None]
  - PRODUCT QUALITY ISSUE [None]
